FAERS Safety Report 6885751-1 (Version None)
Quarter: 2010Q3

REPORT INFORMATION
  Report Type: 
  Country: None (occurrence: None)
  Receive Date: 20100729
  Receipt Date: 20080625
  Transmission Date: 20110219
  Serious: No
  Sender: FDA-Public Use
  Company Number: US-PFIZER INC-2008053381

PATIENT
  Sex: Male

DRUGS (1)
  1. CELEBREX [Suspect]
     Dates: start: 20080624

REACTIONS (4)
  - BURNING SENSATION [None]
  - HYPERHIDROSIS [None]
  - NON-CARDIAC CHEST PAIN [None]
  - PRURITUS [None]
